FAERS Safety Report 8025647-5 (Version None)
Quarter: 2012Q1

REPORT INFORMATION
  Report Type: 
  Country: None (occurrence: None)
  Receive Date: 20120105
  Receipt Date: 20120104
  Transmission Date: 20120608
  Serious: No
  Sender: FDA-Public Use
  Company Number: US-BAYER-2012-001186

PATIENT
  Age: 43 Year
  Sex: Female

DRUGS (1)
  1. GADAVIST [Suspect]
     Indication: NUCLEAR MAGNETIC RESONANCE IMAGING BREAST
     Dosage: 6 ML, UNK
     Route: 042
     Dates: start: 20120103, end: 20120103

REACTIONS (6)
  - SWELLING FACE [None]
  - URTICARIA [None]
  - RASH GENERALISED [None]
  - PRURITUS GENERALISED [None]
  - PRURITUS [None]
  - ERYTHEMA [None]
